FAERS Safety Report 19375294 (Version 2)
Quarter: 2021Q2

REPORT INFORMATION
  Report Type: Report from Study
  Country: FR (occurrence: FR)
  Receive Date: 20210604
  Receipt Date: 20210621
  Transmission Date: 20210717
  Serious: Yes (Hospitalization)
  Sender: FDA-Public Use
  Company Number: NVSC2021FR121339

PATIENT
  Sex: Female

DRUGS (11)
  1. LETROZOLE. [Suspect]
     Active Substance: LETROZOLE
     Indication: BREAST CANCER
     Dosage: 2.5 MG, QD
     Route: 065
     Dates: start: 20190416, end: 20201005
  2. FENTANYL. [Concomitant]
     Active Substance: FENTANYL
     Indication: PAIN
     Dosage: UNK
     Route: 065
     Dates: start: 20190115
  3. TRASTUZUMAB. [Suspect]
     Active Substance: TRASTUZUMAB
     Dosage: 276 MG/KG
     Route: 065
     Dates: start: 20201028
  4. DIFFU?K [Concomitant]
     Active Substance: POTASSIUM CHLORIDE
     Indication: PLATELET COUNT DECREASED
     Route: 065
  5. PALBOCICLIB [Suspect]
     Active Substance: PALBOCICLIB
     Indication: BREAST CANCER
     Dosage: 125 MG
     Route: 065
     Dates: start: 20190416, end: 20201005
  6. PALBOCICLIB [Suspect]
     Active Substance: PALBOCICLIB
     Dosage: 125 MG
     Route: 065
     Dates: start: 20201029
  7. PERTUZUMAB. [Suspect]
     Active Substance: PERTUZUMAB
     Dosage: 420 MG, Q3W
     Route: 065
     Dates: start: 20201028
  8. LETROZOLE. [Suspect]
     Active Substance: LETROZOLE
     Dosage: 2.5 MG, QD
     Route: 065
     Dates: start: 20201028
  9. CEFTRIAXONE. [Concomitant]
     Active Substance: CEFTRIAXONE
     Indication: ANAEMIA
     Route: 065
  10. PERTUZUMAB. [Suspect]
     Active Substance: PERTUZUMAB
     Indication: BREAST CANCER
     Dosage: 420 MG, Q3W
     Route: 065
     Dates: start: 20190416, end: 20200922
  11. TRASTUZUMAB. [Suspect]
     Active Substance: TRASTUZUMAB
     Indication: BREAST CANCER
     Dosage: 6 MG/KG, Q3W
     Route: 065
     Dates: start: 20190416, end: 20200922

REACTIONS (1)
  - General physical health deterioration [Recovered/Resolved]

NARRATIVE: CASE EVENT DATE: 20201013
